FAERS Safety Report 9694680 (Version 3)
Quarter: 2014Q1

REPORT INFORMATION
  Report Type: Spontaneous
  Country: US (occurrence: US)
  Receive Date: 20131119
  Receipt Date: 20140127
  Transmission Date: 20141002
  Serious: Yes (Hospitalization)
  Sender: FDA-Public Use
  Company Number: US-BIOGENIDEC-2013BI109926

PATIENT
  Age: 66 Year
  Sex: Male
  Weight: 118 kg

DRUGS (20)
  1. TYSABRI [Suspect]
     Indication: MULTIPLE SCLEROSIS
     Route: 042
     Dates: start: 20120809, end: 20120906
  2. TYSABRI [Suspect]
     Indication: MULTIPLE SCLEROSIS
     Route: 042
     Dates: start: 20130111, end: 20130308
  3. PRANDIN [Concomitant]
     Route: 048
  4. JANUVIA [Concomitant]
     Route: 048
  5. METFORMIN [Concomitant]
     Route: 048
  6. METFORMIN [Concomitant]
     Route: 048
  7. MACRODANTIN [Concomitant]
     Route: 048
  8. VESICARE [Concomitant]
     Route: 048
  9. VICODIN [Concomitant]
     Route: 048
  10. FLEXERIL [Concomitant]
     Route: 048
  11. ZOCOR [Concomitant]
     Route: 048
  12. ZANAFLEX [Concomitant]
     Route: 048
  13. WELCHOL [Concomitant]
     Route: 048
  14. MICRO K [Concomitant]
     Route: 048
  15. NUVIGIL [Concomitant]
     Route: 048
  16. DEMADEX [Concomitant]
     Route: 048
  17. GABAPENTIN [Concomitant]
     Route: 048
  18. CYMBALTA [Concomitant]
     Route: 048
  19. ALDACTONE [Concomitant]
     Route: 048
  20. NALTREXONE [Concomitant]

REACTIONS (1)
  - Prostatitis [Recovered/Resolved]
